FAERS Safety Report 17461991 (Version 1)
Quarter: 2020Q1

REPORT INFORMATION
  Report Type: Spontaneous
  Country: US (occurrence: US)
  Receive Date: 20200226
  Receipt Date: 20200226
  Transmission Date: 20200409
  Serious: No
  Sender: FDA-Public Use
  Company Number: US-NOVOPROD-675234

PATIENT
  Age: 49 Year
  Sex: Female

DRUGS (5)
  1. PRILOSEC [Concomitant]
     Active Substance: OMEPRAZOLE MAGNESIUM
     Indication: PRODUCT USED FOR UNKNOWN INDICATION
     Dosage: 40 MG
  2. SAXENDA [Suspect]
     Active Substance: LIRAGLUTIDE
     Indication: WEIGHT DECREASED
     Dosage: UNK
     Route: 058
     Dates: start: 201907, end: 20190704
  3. SAXENDA [Suspect]
     Active Substance: LIRAGLUTIDE
     Dosage: 1.8 MG, QD
     Route: 058
     Dates: start: 20190715, end: 20190716
  4. SAXENDA [Suspect]
     Active Substance: LIRAGLUTIDE
     Dosage: 1.8 MG, QD
     Route: 058
     Dates: start: 20190704, end: 20190706
  5. SAXENDA [Suspect]
     Active Substance: LIRAGLUTIDE
     Dosage: 1.2 MG, QD
     Route: 058
     Dates: start: 20190708, end: 20190715

REACTIONS (9)
  - Dysgeusia [Recovered/Resolved]
  - Abdominal pain [Not Recovered/Not Resolved]
  - Vomiting [Not Recovered/Not Resolved]
  - Eructation [Recovered/Resolved]
  - Nausea [Recovered/Resolved]
  - Abdominal discomfort [Unknown]
  - Bile acid malabsorption [Not Recovered/Not Resolved]
  - Product dose omission [Recovered/Resolved]
  - Inappropriate schedule of product administration [Recovered/Resolved]

NARRATIVE: CASE EVENT DATE: 201907
